FAERS Safety Report 15776282 (Version 1)
Quarter: 2018Q4

REPORT INFORMATION
  Report Type: Spontaneous
  Country: US (occurrence: US)
  Receive Date: 20181231
  Receipt Date: 20181231
  Transmission Date: 20190205
  Serious: Yes (Hospitalization, Other)
  Sender: FDA-Public Use
  Company Number: US-BIOGEN-2018BI00676654

PATIENT
  Age: 43 Year
  Sex: Female

DRUGS (1)
  1. TYSABRI [Suspect]
     Active Substance: NATALIZUMAB
     Indication: MULTIPLE SCLEROSIS
     Route: 042
     Dates: start: 20130611, end: 20180829

REACTIONS (16)
  - Insomnia [Unknown]
  - Skin injury [Unknown]
  - Gait disturbance [Unknown]
  - Hemiparaesthesia [Unknown]
  - Neuralgia [Unknown]
  - Fall [Recovered/Resolved]
  - Deafness [Unknown]
  - Skin injury [Unknown]
  - Balance disorder [Unknown]
  - Blindness unilateral [Unknown]
  - Spinal pain [Unknown]
  - Product dose omission [Unknown]
  - Arthralgia [Unknown]
  - Headache [Unknown]
  - Fatigue [Unknown]
  - Pain [Unknown]

NARRATIVE: CASE EVENT DATE: 201811
